FAERS Safety Report 25952498 (Version 1)
Quarter: 2025Q4

REPORT INFORMATION
  Report Type: Report from Study
  Country: EU (occurrence: EU)
  Receive Date: 20251023
  Receipt Date: 20251023
  Transmission Date: 20260117
  Serious: Yes (Hospitalization, Other)
  Sender: PFIZER
  Company Number: EU-REGENERON PHARMACEUTICALS, INC.-2025-161551

PATIENT
  Age: 66 Year
  Sex: Male

DRUGS (3)
  1. CARBOPLATIN [Suspect]
     Active Substance: CARBOPLATIN
     Dosage: AUC 5 FOR 4 INITIAL CYCLES AND 3  MAINTENANCE CYCLES
  2. PEMETREXED [Suspect]
     Active Substance: PEMETREXED
     Dosage: 4 INITIAL CYCLES AND 3  MAINTENANCE CYCLES
  3. CEMIPLIMAB [Suspect]
     Active Substance: CEMIPLIMAB
     Indication: Product used for unknown indication
     Dosage: 4 INITIAL CYCLES AND 3  MAINTENANCE CYCLES

REACTIONS (2)
  - Constipation [Unknown]
  - Immune-mediated enterocolitis [Unknown]

NARRATIVE: CASE EVENT DATE: 20250801
